FAERS Safety Report 9020620 (Version 1)
Quarter: 2013Q1

REPORT INFORMATION
  Report Type: Spontaneous
  Country: US (occurrence: US)
  Receive Date: 20130119
  Receipt Date: 20130119
  Transmission Date: 20140127
  Serious: No
  Sender: FDA-Public Use
  Company Number: US-ALLERGAN-1206857US

PATIENT
  Sex: Female

DRUGS (1)
  1. BOTOX? [Suspect]
     Indication: TORTICOLLIS
     Dosage: 420 UNITS, SINGLE
     Route: 030
     Dates: start: 2009, end: 2009

REACTIONS (3)
  - Neuralgia [Unknown]
  - Migraine [Unknown]
  - Vomiting [Unknown]
